FAERS Safety Report 8319643-8 (Version None)
Quarter: 2012Q2

REPORT INFORMATION
  Report Type: 
  Country: None (occurrence: None)
  Receive Date: 20120427
  Receipt Date: 20120419
  Transmission Date: 20120825
  Serious: Yes (Hospitalization)
  Sender: FDA-Public Use
  Company Number: PHHY2012IR033818

PATIENT
  Age: 44 Year
  Sex: Female

DRUGS (1)
  1. INTERFERON BETA-1B [Suspect]
     Indication: RELAPSING-REMITTING MULTIPLE SCLEROSIS
     Dosage: TWO TIMES PER WEEK
     Route: 058

REACTIONS (11)
  - MYASTHENIA GRAVIS CRISIS [None]
  - SPEECH DISORDER [None]
  - FATIGUE [None]
  - NEUROMUSCULAR BLOCKADE [None]
  - EYELID PTOSIS [None]
  - DYSPNOEA [None]
  - CHOKING [None]
  - DYSPHAGIA [None]
  - FACIAL PARESIS [None]
  - REGURGITATION [None]
  - DIPLOPIA [None]
